FAERS Safety Report 10473859 (Version 1)
Quarter: 2014Q3

REPORT INFORMATION
  Report Type: Report from Study
  Country: US (occurrence: US)
  Receive Date: 20140924
  Receipt Date: 20140924
  Transmission Date: 20150326
  Serious: No
  Sender: FDA-Public Use
  Company Number: US-ALEXION-A201305656

PATIENT

DRUGS (2)
  1. SOLIRIS [Suspect]
     Active Substance: ECULIZUMAB
     Indication: PAROXYSMAL NOCTURNAL HAEMOGLOBINURIA
     Dosage: UNK
     Route: 042
  2. SOLIRIS [Suspect]
     Active Substance: ECULIZUMAB
     Dosage: UNK
     Route: 042
     Dates: start: 20130515

REACTIONS (5)
  - White blood cell count decreased [Unknown]
  - Nasopharyngitis [Unknown]
  - Asthenia [Recovering/Resolving]
  - Chromaturia [Unknown]
  - Fatigue [Unknown]

NARRATIVE: CASE EVENT DATE: 20130912
